FAERS Safety Report 6188985-7 (Version None)
Quarter: 2009Q2

REPORT INFORMATION
  Report Type: 
  Country: None (occurrence: None)
  Receive Date: 20090513
  Receipt Date: 20090430
  Transmission Date: 20091009
  Serious: Yes (Death)
  Sender: FDA-Public Use
  Company Number: US-PFIZER INC-2009206364

PATIENT
  Age: 77 Year
  Sex: Male

DRUGS (2)
  1. TOLTERODINE TARTRATE [Suspect]
     Indication: HYPERTONIC BLADDER
  2. SOLIFENACIN [Suspect]
     Indication: HYPERTONIC BLADDER

REACTIONS (1)
  - INTRACRANIAL ANEURYSM [None]
